FAERS Safety Report 14169581 (Version 1)
Quarter: 2017Q4

REPORT INFORMATION
  Report Type: Report from Study
  Country: MX (occurrence: MX)
  Receive Date: 20171108
  Receipt Date: 20171108
  Transmission Date: 20180321
  Serious: Yes (Disabling, Other)
  Sender: FDA-Public Use
  Company Number: MX-ROCHE-2016989

PATIENT
  Age: 62 Year
  Sex: Female

DRUGS (8)
  1. HERCEPTIN [Suspect]
     Active Substance: TRASTUZUMAB
     Indication: BREAST CANCER
     Route: 065
     Dates: start: 201311, end: 201401
  2. TAXOTERE [Concomitant]
     Active Substance: DOCETAXEL
     Route: 065
     Dates: start: 201411
  3. PERJETA [Suspect]
     Active Substance: PERTUZUMAB
     Indication: BREAST CANCER
     Route: 065
     Dates: start: 201703
  4. METFORMIN [Concomitant]
     Active Substance: METFORMIN HYDROCHLORIDE
     Indication: BLOOD GLUCOSE INCREASED
     Route: 065
  5. CYCLOPHOSPHAMIDE. [Concomitant]
     Active Substance: CYCLOPHOSPHAMIDE
     Route: 065
     Dates: start: 201411
  6. SINTROM [Concomitant]
     Active Substance: ACENOCOUMAROL
     Route: 065
  7. ARIMIDEX [Concomitant]
     Active Substance: ANASTROZOLE
     Route: 048
     Dates: start: 201411
  8. PACLITAXEL. [Concomitant]
     Active Substance: PACLITAXEL
     Route: 065
     Dates: start: 201703

REACTIONS (25)
  - Erythema [Recovered/Resolved]
  - Neurological decompensation [Recovering/Resolving]
  - Nausea [Unknown]
  - Gait disturbance [Recovering/Resolving]
  - Disease progression [Recovering/Resolving]
  - Skin disorder [Recovering/Resolving]
  - Metastases to central nervous system [Unknown]
  - Mood altered [Unknown]
  - Pruritus [Unknown]
  - Alopecia [Unknown]
  - Gastrointestinal disorder [Unknown]
  - Anxiety [Unknown]
  - Blood glucose fluctuation [Recovering/Resolving]
  - Dysgeusia [Recovering/Resolving]
  - Weight increased [Unknown]
  - Speech disorder [Unknown]
  - Thoracic vertebral fracture [Recovering/Resolving]
  - Pain in extremity [Recovered/Resolved with Sequelae]
  - Vertigo [Recovering/Resolving]
  - Muscular weakness [Recovering/Resolving]
  - Drug ineffective [Unknown]
  - Spinal pain [Recovering/Resolving]
  - Coordination abnormal [Recovering/Resolving]
  - Depression [Unknown]
  - Hallucination [Recovered/Resolved]

NARRATIVE: CASE EVENT DATE: 201311
